FAERS Safety Report 18361248 (Version 1)
Quarter: 2020Q4

REPORT INFORMATION
  Report Type: Spontaneous
  Country: FR (occurrence: FR)
  Receive Date: 20201008
  Receipt Date: 20201008
  Transmission Date: 20210114
  Serious: Yes (Life-Threatening, Hospitalization)
  Sender: FDA-Public Use
  Company Number: NVSC2020FR270532

PATIENT
  Sex: Male

DRUGS (1)
  1. PARACETAMOL [Suspect]
     Active Substance: ACETAMINOPHEN
     Indication: PAIN IN EXTREMITY
     Dosage: 5 G (TOOK A TOTAL OF 5 PILLS (5G OF PARACETAMOL ABSORBED WITHIN A FEW HOURS))
     Route: 065

REACTIONS (7)
  - Overdose [Unknown]
  - Drug ineffective [Unknown]
  - Toxicity to various agents [Unknown]
  - Fall [Unknown]
  - Acute hepatic failure [Unknown]
  - Inappropriate schedule of product administration [Unknown]
  - Coma [Unknown]
